FAERS Safety Report 13827066 (Version 1)
Quarter: 2017Q3

REPORT INFORMATION
  Report Type: Spontaneous
  Country: US (occurrence: US)
  Receive Date: 20170802
  Receipt Date: 20170802
  Transmission Date: 20171127
  Serious: No
  Sender: FDA-Public Use
  Company Number: US-ROCHE-665801

PATIENT
  Sex: Female
  Weight: 77.1 kg

DRUGS (4)
  1. LIPITOR [Concomitant]
     Active Substance: ATORVASTATIN CALCIUM
     Route: 065
  2. BONIVA [Suspect]
     Active Substance: IBANDRONATE SODIUM
     Indication: OSTEOPOROSIS
     Route: 048
  3. VITAMIN D [Concomitant]
     Active Substance: CHOLECALCIFEROL
     Route: 065
  4. CITRUCEL [Concomitant]
     Active Substance: METHYLCELLULOSE (4000 MPA.S)
     Route: 065

REACTIONS (8)
  - Musculoskeletal pain [Unknown]
  - Diarrhoea [Unknown]
  - Dyspepsia [Unknown]
  - Myalgia [Unknown]
  - Pain [Unknown]
  - Influenza like illness [Unknown]
  - Arthralgia [Unknown]
  - Nausea [Unknown]
